FAERS Safety Report 6789716-X (Version None)
Quarter: 2010Q2

REPORT INFORMATION
  Report Type: 
  Country: None (occurrence: None)
  Receive Date: 20100520
  Receipt Date: 20090908
  Transmission Date: 20101027
  Serious: Yes (Other)
  Sender: FDA-Public Use
  Company Number: 2009266183

PATIENT
  Age: 48 Year
  Sex: Female

DRUGS (5)
  1. PROVERA [Suspect]
     Indication: HORMONE REPLACEMENT THERAPY
     Dosage: 10 MG, ORAL ; 2.5 MG
     Route: 048
     Dates: start: 19820101, end: 19950101
  2. PREMPRO [Suspect]
     Indication: HORMONE REPLACEMENT THERAPY
     Dosage: 0.625/2.5
     Dates: start: 19950101, end: 20000101
  3. PREMARIN [Suspect]
     Indication: HORMONE REPLACEMENT THERAPY
     Dosage: 0.625 MG
     Dates: start: 19820101, end: 19950101
  4. CLONIDINE [Concomitant]
  5. VASERETIC [Concomitant]

REACTIONS (1)
  - BREAST CANCER FEMALE [None]
